FAERS Safety Report 10474040 (Version 1)
Quarter: 2014Q3

REPORT INFORMATION
  Report Type: Spontaneous
  Country: US (occurrence: US)
  Receive Date: 20140924
  Receipt Date: 20140924
  Transmission Date: 20150326
  Serious: Yes (Hospitalization)
  Sender: FDA-Public Use
  Company Number: US-GLAXOSMITHKLINE-A1090711A

PATIENT
  Age: 81 Year
  Sex: Female

DRUGS (1)
  1. LAMICTAL XR [Suspect]
     Active Substance: LAMOTRIGINE
     Indication: PRODUCT USED FOR UNKNOWN INDICATION
     Dosage: 100MG UNKNOWN
     Route: 065

REACTIONS (1)
  - Investigation [Unknown]

NARRATIVE: CASE EVENT DATE: 2012
